FAERS Safety Report 4310740-0 (Version None)
Quarter: 2004Q1

REPORT INFORMATION
  Report Type: 
  Country: None (occurrence: None)
  Receive Date: 20040303
  Receipt Date: 20040209
  Transmission Date: 20041129
  Serious: Yes (Hospitalization, Disabling)
  Sender: FDA-Public Use
  Company Number: WAES 0402USA00909

PATIENT
  Age: 66 Year
  Sex: Male
  Weight: 49 kg

DRUGS (1)
  1. STROMECTOL [Suspect]
     Route: 048
     Dates: start: 20031210, end: 20031210

REACTIONS (12)
  - ARTHRALGIA [None]
  - ASTHENIA [None]
  - BLOOD SMEAR TEST ABNORMAL [None]
  - COMA [None]
  - CONFUSIONAL STATE [None]
  - DEPRESSED LEVEL OF CONSCIOUSNESS [None]
  - DIARRHOEA [None]
  - HELMINTHIC INFECTION [None]
  - JOINT EFFUSION [None]
  - PROTEIN URINE [None]
  - PYREXIA [None]
  - VERTIGO [None]
